FAERS Safety Report 5930965-8 (Version None)
Quarter: 2008Q4

REPORT INFORMATION
  Report Type: 
  Country: None (occurrence: None)
  Receive Date: 20081003
  Receipt Date: 20080708
  Transmission Date: 20090506
  Serious: Yes (Other)
  Sender: FDA-Public Use
  Company Number: 2008057172

PATIENT
  Age: 31 Year
  Sex: Female
  Weight: 68 kg

DRUGS (9)
  1. ADRIAMYCIN PFS [Suspect]
     Indication: BREAST CANCER
     Dates: start: 20080201
  2. TAXOTERE [Suspect]
     Indication: BREAST CANCER
     Dosage: 125 MG (75 MG/M2, CYCLICAL)
     Dates: start: 20080201, end: 20080401
  3. CYTOXAN [Suspect]
     Indication: BREAST CANCER
     Dates: start: 20080201
  4. ZOFRAN [Concomitant]
  5. DEXAMETHASONE TAB [Concomitant]
  6. EMEND (APREPITANT) [Concomitant]
  7. ATIVAN [Concomitant]
  8. NEULASTA [Concomitant]
  9. LEUPRORELIN (LEUPRORELIN) [Concomitant]

REACTIONS (2)
  - ATRIAL FIBRILLATION [None]
  - TACHYCARDIA [None]
